FAERS Safety Report 13393496 (Version 1)
Quarter: 2017Q1

REPORT INFORMATION
  Report Type: Spontaneous
  Country: US (occurrence: US)
  Receive Date: 20170331
  Receipt Date: 20170331
  Transmission Date: 20170429
  Serious: No
  Sender: FDA-Public Use
  Company Number: US-SEPTODONT-201603658

PATIENT
  Age: 88 Year
  Sex: Female

DRUGS (2)
  1. BENZOCAINE. [Concomitant]
     Active Substance: BENZOCAINE
     Dates: start: 20160926, end: 20160926
  2. XYLOCAINE 2% WITH EPINEPHRINE 1:100,000 INJECTION [Suspect]
     Active Substance: EPINEPHRINE BITARTRATE\LIDOCAINE HYDROCHLORIDE
     Indication: LOCAL ANAESTHESIA
     Dosage: LEFT IA IN HEALTH TISSUE USING NERVE BLOCK TECHNIQUE AND 27G 4MM X 35MM GIBSON NEEDLE.
     Route: 004
     Dates: start: 20160926, end: 20160926

REACTIONS (3)
  - Stomatitis [Recovered/Resolved]
  - Rash [Recovered/Resolved]
  - Tongue ulceration [Recovered/Resolved]

NARRATIVE: CASE EVENT DATE: 20160926
